FAERS Safety Report 7957752-3 (Version None)
Quarter: 2011Q4

REPORT INFORMATION
  Report Type: 
  Country: None (occurrence: None)
  Receive Date: 20111205
  Receipt Date: 20111205
  Transmission Date: 20120403
  Serious: Yes (Hospitalization, Other)
  Sender: FDA-Public Use
  Company Number: PHHO2010CA17740

PATIENT
  Sex: Male
  Weight: 69.3 kg

DRUGS (2)
  1. TINZAPARIN [Concomitant]
     Indication: THROMBOSIS PROPHYLAXIS
  2. AFINITOR [Suspect]
     Indication: METASTATIC GASTRIC CANCER
     Dosage: 10 MG, QD
     Route: 048
     Dates: start: 20101027, end: 20101120

REACTIONS (8)
  - FATIGUE [None]
  - ANAEMIA [None]
  - NEOPLASM MALIGNANT [None]
  - GASTROINTESTINAL HAEMORRHAGE [None]
  - DIZZINESS [None]
  - DEEP VEIN THROMBOSIS [None]
  - DYSPNOEA [None]
  - EPISTAXIS [None]
